FAERS Safety Report 25688402 (Version 2)
Quarter: 2025Q3

REPORT INFORMATION
  Report Type: Spontaneous
  Country: US (occurrence: US)
  Receive Date: 20250818
  Receipt Date: 20250822
  Transmission Date: 20251021
  Serious: No
  Sender: SANOFI AVENTIS
  Company Number: US-SA-2025SA240827

PATIENT
  Sex: Male
  Weight: 76.36 kg

DRUGS (4)
  1. DUPIXENT [Suspect]
     Active Substance: DUPILUMAB
     Indication: Dermatitis atopic
     Route: 058
  2. DUPIXENT [Suspect]
     Active Substance: DUPILUMAB
     Dosage: 300 MG, QOW
     Route: 058
  3. FLUOCINOLONE ACETONIDE [Concomitant]
     Active Substance: FLUOCINOLONE ACETONIDE
  4. MUPIROCIN [Concomitant]
     Active Substance: MUPIROCIN

REACTIONS (7)
  - Nervousness [Unknown]
  - Injection site discolouration [Unknown]
  - Injection site mass [Recovered/Resolved]
  - Pruritus [Not Recovered/Not Resolved]
  - Skin infection [Not Recovered/Not Resolved]
  - Scab [Not Recovered/Not Resolved]
  - Hyperphagia [Unknown]
